FAERS Safety Report 7578016-6 (Version None)
Quarter: 2011Q2

REPORT INFORMATION
  Report Type: 
  Country: None (occurrence: None)
  Receive Date: 20110628
  Receipt Date: 20110624
  Transmission Date: 20111010
  Serious: Yes (Death, Hospitalization)
  Sender: FDA-Public Use
  Company Number: CH-PFIZER INC-2011141712

PATIENT
  Age: 13 Year

DRUGS (4)
  1. SOMATROPIN [Suspect]
     Dosage: 7 MG, WEEKLY
  2. SOMATROPIN [Suspect]
     Indication: HYPOPITUITARISM
     Dosage: WEEKLY
     Dates: start: 20000119
  3. MAGNESIOCARD [Concomitant]
     Dosage: 7.5 MMOL, 1X/DAY
     Dates: start: 19960224
  4. LEVOTHYROXINE SODIUM [Concomitant]
     Dosage: 0.375MG, 1X/DAY
     Dates: start: 19980825

REACTIONS (2)
  - NEOPLASM MALIGNANT [None]
  - MALIGNANT MESENCHYMOMA [None]
